FAERS Safety Report 22743533 (Version 5)
Quarter: 2023Q4

REPORT INFORMATION
  Report Type: Spontaneous
  Country: JP (occurrence: JP)
  Receive Date: 20230724
  Receipt Date: 20231020
  Transmission Date: 20240109
  Serious: Yes (Other)
  Sender: FDA-Public Use
  Company Number: JP-MALLINCKRODT-MNK202303227

PATIENT
  Age: 42 Year
  Sex: Male
  Weight: 52 kg

DRUGS (11)
  1. UVADEX [Suspect]
     Active Substance: METHOXSALEN
     Indication: Chronic graft versus host disease
     Dosage: UNKNOWN
     Route: 050
     Dates: start: 20230704, end: 20230704
  2. UVADEX [Suspect]
     Active Substance: METHOXSALEN
     Dosage: UNKNOWN
     Route: 050
     Dates: start: 20230705, end: 20230705
  3. UVADEX [Suspect]
     Active Substance: METHOXSALEN
     Dosage: UNKNOWN
     Route: 050
     Dates: start: 20230706, end: 20230706
  4. UVADEX [Suspect]
     Active Substance: METHOXSALEN
     Dosage: UNKNOWN
     Route: 050
     Dates: start: 20230712, end: 20230712
  5. UVADEX [Suspect]
     Active Substance: METHOXSALEN
     Dosage: UNKNOWN
     Route: 050
  6. HEPARIN [Concomitant]
     Active Substance: HEPARIN SODIUM
     Dosage: 10:1
     Dates: start: 20230704
  7. HEPARIN [Concomitant]
     Active Substance: HEPARIN SODIUM
     Dosage: 10:1, UNKNOWN DOSE
     Dates: start: 20230705
  8. HEPARIN [Concomitant]
     Active Substance: HEPARIN SODIUM
     Dosage: 8:1, UNKNOWN DOSE
     Dates: start: 20230706
  9. ANTICOAGULANT CITRATE DEXTROSE SOLUTION (ACD) NOS [Concomitant]
     Active Substance: CITRIC ACID MONOHYDRATE\DEXTROSE\SODIUM CITRATE
     Dosage: 10:1 (APPROXIMATELY 180ML)
     Dates: start: 20230712
  10. ANTICOAGULANT CITRATE DEXTROSE SOLUTION (ACD) NOS [Concomitant]
     Active Substance: CITRIC ACID MONOHYDRATE\DEXTROSE\SODIUM CITRATE
     Dosage: 10:1 (APPROXIMATELY 180ML)
  11. ANTICOAGULANT CITRATE DEXTROSE SOLUTION (ACD) NOS [Concomitant]
     Active Substance: CITRIC ACID MONOHYDRATE\DEXTROSE\SODIUM CITRATE
     Dosage: 10:1 (APPROXIMATELY 215ML)

REACTIONS (6)
  - Thrombosis in device [Unknown]
  - Pyrexia [Unknown]
  - Blood cholesterol increased [Unknown]
  - Blood triglycerides decreased [Unknown]
  - Device alarm issue [Unknown]
  - Product use in unapproved indication [Unknown]

NARRATIVE: CASE EVENT DATE: 20230701
